FAERS Safety Report 5250000-7 (Version None)
Quarter: 2007Q1

REPORT INFORMATION
  Report Type: 
  Country: None (occurrence: None)
  Receive Date: 20070228
  Receipt Date: 20060116
  Transmission Date: 20070707
  Serious: No
  Sender: FDA-Public Use
  Company Number: US-GLAXOSMITHKLINE-A0590122A

PATIENT
  Sex: Female

DRUGS (2)
  1. LAMICTAL [Suspect]
     Indication: PANIC DISORDER
     Route: 048
     Dates: start: 20060109
  2. PAXIL [Suspect]
     Indication: PANIC DISORDER
     Route: 048

REACTIONS (1)
  - HEADACHE [None]
